FAERS Safety Report 9340334 (Version 1)
Quarter: 2013Q2

REPORT INFORMATION
  Report Type: Spontaneous
  Country: ES (occurrence: ES)
  Receive Date: 20130610
  Receipt Date: 20130610
  Transmission Date: 20140414
  Serious: Yes (Disabling, Other)
  Sender: FDA-Public Use
  Company Number: ES-ROCHE-1233974

PATIENT
  Age: 40 Year
  Sex: Female

DRUGS (3)
  1. XOLAIR [Suspect]
     Indication: ASTHMA
     Route: 065
  2. XOLAIR [Suspect]
     Route: 065
     Dates: start: 201303
  3. EUTIROX [Concomitant]

REACTIONS (7)
  - Abasia [Recovered/Resolved]
  - Temperature regulation disorder [Recovered/Resolved]
  - Fatigue [Recovered/Resolved]
  - Myalgia [Recovered/Resolved]
  - Oedema [Unknown]
  - Pyrexia [Unknown]
  - Arthralgia [Unknown]
